FAERS Safety Report 15148946 (Version 1)
Quarter: 2018Q3

REPORT INFORMATION
  Report Type: Spontaneous
  Country: US (occurrence: US)
  Receive Date: 20180713
  Receipt Date: 20180713
  Transmission Date: 20181010
  Serious: Yes (Other)
  Sender: FDA-Public Use
  Company Number: None

PATIENT
  Age: 18 Month
  Sex: Female

DRUGS (2)
  1. KESARIA BALGUTI [Suspect]
     Active Substance: HERBALS
     Indication: DYSPEPSIA
     Route: 048
     Dates: start: 20180101, end: 20180228
  2. KESARIA BALGUTI [Suspect]
     Active Substance: HERBALS
     Indication: COUGH
     Route: 048
     Dates: start: 20180101, end: 20180228

REACTIONS (1)
  - Metal poisoning [None]

NARRATIVE: CASE EVENT DATE: 20180302
